FAERS Safety Report 16963901 (Version 3)
Quarter: 2021Q4

REPORT INFORMATION
  Report Type: Report from Study
  Country: US (occurrence: US)
  Receive Date: 20191026
  Receipt Date: 20211217
  Transmission Date: 20220303
  Serious: Yes (Other)
  Sender: FDA-Public Use
  Company Number: US-NOVARTISPH-NVSC2019US014361

PATIENT
  Age: 43 Year
  Sex: Male

DRUGS (1)
  1. COSENTYX [Suspect]
     Active Substance: SECUKINUMAB
     Indication: Psoriasis
     Dosage: 300 MG, QMO
     Route: 058
     Dates: start: 20190529

REACTIONS (4)
  - Lower respiratory tract infection [Unknown]
  - Pain in extremity [Unknown]
  - Skin fissures [Unknown]
  - Psoriasis [Unknown]

NARRATIVE: CASE EVENT DATE: 20191013
